FAERS Safety Report 12389214 (Version 4)
Quarter: 2016Q2

REPORT INFORMATION
  Report Type: Report from Study
  Country: MX (occurrence: MX)
  Receive Date: 20160520
  Receipt Date: 20160617
  Transmission Date: 20160815
  Serious: Yes (Life-Threatening, Hospitalization)
  Sender: FDA-Public Use
  Company Number: MX-PFIZER INC-2016261343

PATIENT
  Age: 68 Year
  Sex: Male
  Weight: 79 kg

DRUGS (10)
  1. PEGFILGRASTIM [Concomitant]
     Active Substance: PEGFILGRASTIM
     Dosage: GIVEN ON DAY TWO, CYCLE ONE
  2. EPLERENONE. [Concomitant]
     Active Substance: EPLERENONE
  3. DOXORUBICIN HCL [Suspect]
     Active Substance: DOXORUBICIN HYDROCHLORIDE
     Indication: EPITHELIOID SARCOMA METASTATIC
     Dosage: 75 MG/M2, ON DAY 1
     Route: 042
     Dates: start: 20160419
  4. CAPTOPRIL. [Concomitant]
     Active Substance: CAPTOPRIL
  5. ENOXAPARIN [Concomitant]
     Active Substance: ENOXAPARIN
  6. DEXRAZOXANE. [Suspect]
     Active Substance: DEXRAZOXANE
     Indication: EPITHELIOID SARCOMA METASTATIC
     Route: 042
  7. CLOPIDOGREL [Concomitant]
     Active Substance: CLOPIDOGREL BISULFATE
  8. BLINDED THERAPY [Suspect]
     Active Substance: INVESTIGATIONAL PRODUCT
     Indication: EPITHELIOID SARCOMA METASTATIC
     Dosage: ON DAYS 1 AND 8
     Route: 042
     Dates: start: 20160419, end: 20160426
  9. ISOSORBIDE. [Concomitant]
     Active Substance: ISOSORBIDE
  10. FUROSEMIDE. [Concomitant]
     Active Substance: FUROSEMIDE

REACTIONS (1)
  - Myocarditis [Recovered/Resolved with Sequelae]

NARRATIVE: CASE EVENT DATE: 20160504
